FAERS Safety Report 4338457-7 (Version None)
Quarter: 2004Q2

REPORT INFORMATION
  Report Type: 
  Country: None (occurrence: None)
  Receive Date: 20040409
  Receipt Date: 20040330
  Transmission Date: 20050107
  Serious: Yes (Death)
  Sender: FDA-Public Use
  Company Number: JP-JNJFOC-20040302326

PATIENT
  Age: 68 Year
  Sex: Male

DRUGS (11)
  1. DURAGESIC [Suspect]
     Indication: CANCER PAIN
     Dosage: 2.5 MG, 1 IN 3 DAY, TRANSDERMAL; SEE IMAGE
     Route: 062
     Dates: start: 20030126, end: 20040203
  2. DURAGESIC [Suspect]
     Indication: CANCER PAIN
     Dosage: 2.5 MG, 1 IN 3 DAY, TRANSDERMAL; SEE IMAGE
     Route: 062
     Dates: start: 20040204, end: 20040209
  3. BISACODYL [Concomitant]
  4. SODIUM PICOSULFATE [Concomitant]
  5. PANTHENOL [Concomitant]
  6. METOCLOPRAMIDE [Concomitant]
  7. FAMOTIDINE OINTMENT [Concomitant]
  8. FUROSEMIDE [Concomitant]
  9. BETAMETHASONE [Concomitant]
  10. INSULIN HUMAN [Concomitant]
  11. HALOPERIDOL [Concomitant]

REACTIONS (1)
  - DEATH [None]
